FAERS Safety Report 19199868 (Version 1)
Quarter: 2021Q2

REPORT INFORMATION
  Report Type: Spontaneous
  Country: US (occurrence: US)
  Receive Date: 20210429
  Receipt Date: 20210429
  Transmission Date: 20210717
  Serious: No
  Sender: FDA-Public Use
  Company Number: None

PATIENT
  Age: 66 Year
  Sex: Male

DRUGS (1)
  1. COSENTYX [Suspect]
     Active Substance: SECUKINUMAB
     Indication: PSORIASIS
     Dosage: INJECT 300MG (2 PEN) SUBCUTANEOUSLY EVERY WEEK FOR  5 WEEKS  AS DIRECTED
     Route: 058
     Dates: start: 202104

REACTIONS (2)
  - COVID-19 [None]
  - Therapy interrupted [None]
